FAERS Safety Report 25963077 (Version 1)
Quarter: 2025Q4

REPORT INFORMATION
  Report Type: Spontaneous
  Country: US (occurrence: US)
  Receive Date: 20251027
  Receipt Date: 20251027
  Transmission Date: 20260118
  Serious: No
  Sender: SANDOZ
  Company Number: US-SANDOZ-SDZ2025US077808

PATIENT
  Age: 76 Year
  Sex: Female

DRUGS (1)
  1. ALBUTEROL SULFATE [Suspect]
     Active Substance: ALBUTEROL SULFATE
     Indication: Product used for unknown indication
     Dosage: 90 MCG WITH DOSE INDICATOR 1-2 PUFFS EVERY 6 HOURS
     Route: 048
     Dates: start: 20251011, end: 20251015

REACTIONS (2)
  - Product dose omission issue [Unknown]
  - Device delivery system issue [Unknown]
